FAERS Safety Report 5074746-9 (Version None)
Quarter: 2006Q3

REPORT INFORMATION
  Report Type: 
  Country: None (occurrence: None)
  Receive Date: 20060804
  Receipt Date: 20060720
  Transmission Date: 20061208
  Serious: Yes (Hospitalization)
  Sender: FDA-Public Use
  Company Number: 2006001482

PATIENT
  Age: 74 Year
  Sex: Female

DRUGS (11)
  1. TARCEVA [Suspect]
     Indication: NON-SMALL CELL LUNG CANCER
     Dosage: 150 MG (QD) ORAL
     Route: 048
     Dates: start: 20060717, end: 20060717
  2. LANOXIN [Concomitant]
  3. HYDROCHLOROTHIAZIDE [Concomitant]
  4. ATACAND [Concomitant]
  5. NITROFURAN (NITROFURANTOIN) [Concomitant]
  6. ASPIRIN [Concomitant]
  7. LYRICA [Concomitant]
  8. VITAMINS [Concomitant]
  9. CALTRATE (CALCIUM CARBONATE) [Concomitant]
  10. ZOLOFT [Concomitant]
  11. ZOMETA [Concomitant]

REACTIONS (3)
  - FALL [None]
  - MENTAL STATUS CHANGES [None]
  - PYREXIA [None]
